FAERS Safety Report 21997566 (Version 2)
Quarter: 2023Q1

REPORT INFORMATION
  Report Type: Other
  Country: CA (occurrence: CA)
  Receive Date: 20230216
  Receipt Date: 20230223
  Transmission Date: 20230418
  Serious: Yes (Hospitalization)
  Sender: FDA-Public Use
  Company Number: CA-APOTEX-2023AP003472

PATIENT
  Sex: Male

DRUGS (1)
  1. LENALIDOMIDE [Suspect]
     Active Substance: LENALIDOMIDE
     Indication: Plasma cell myeloma
     Dosage: 5 MILLIGRAM, QD
     Route: 048
     Dates: start: 20220930

REACTIONS (1)
  - Hospitalisation [Unknown]
